FAERS Safety Report 23353199 (Version 2)
Quarter: 2024Q3

REPORT INFORMATION
  Report Type: Spontaneous
  Country: US (occurrence: US)
  Receive Date: 20231230
  Receipt Date: 20240725
  Transmission Date: 20241017
  Serious: No
  Sender: AMGEN
  Company Number: US-AMGEN-USASP2023232221

PATIENT
  Age: 77 Year
  Sex: Female

DRUGS (3)
  1. MVASI [Suspect]
     Active Substance: BEVACIZUMAB-AWWB
     Indication: Ovarian cancer
     Dosage: 400 MILLIGRAM (DOSE ORDERED: 425 MG)
     Route: 065
  2. MVASI [Suspect]
     Active Substance: BEVACIZUMAB-AWWB
     Dosage: 100 MILLIGRAM (DOSE ORDERED: 425 MG)
     Route: 065
  3. MVASI [Suspect]
     Active Substance: BEVACIZUMAB-AWWB
     Dosage: 800 MILLIGRAM  (2 X400 MG VIALS)
     Route: 065

REACTIONS (3)
  - Oropharyngeal pain [Recovered/Resolved]
  - Diarrhoea [Recovered/Resolved]
  - Asthenia [Unknown]

NARRATIVE: CASE EVENT DATE: 20231124
